FAERS Safety Report 6130708-1 (Version None)
Quarter: 2009Q1

REPORT INFORMATION
  Report Type: 
  Country: None (occurrence: None)
  Receive Date: 20090325
  Receipt Date: 20090313
  Transmission Date: 20090719
  Serious: Yes (Hospitalization, Other)
  Sender: FDA-Public Use
  Company Number: JP-JNJFOC-20090303082

PATIENT
  Sex: Female
  Weight: 54 kg

DRUGS (10)
  1. REMICADE [Suspect]
     Dosage: 2ND INFUSION
     Route: 042
  2. REMICADE [Suspect]
     Indication: RHEUMATOID ARTHRITIS
     Route: 042
  3. RHEUMATREX [Suspect]
     Indication: RHEUMATOID ARTHRITIS
     Route: 048
  4. AZULFIDINE [Suspect]
     Indication: RHEUMATOID ARTHRITIS
     Dosage: 0.5 GM
     Route: 048
  5. MUCOSTA [Concomitant]
     Indication: RHEUMATOID ARTHRITIS
     Dosage: AND 100 MG. PO DAILY
     Route: 048
  6. FOLIAMIN [Concomitant]
     Indication: RHEUMATOID ARTHRITIS
     Route: 048
  7. URSO 250 [Concomitant]
     Indication: HEPATIC FUNCTION ABNORMAL
     Route: 048
  8. PLAVIX [Concomitant]
     Indication: PROPHYLAXIS
     Route: 048
  9. FERO-GRADUMET [Concomitant]
     Indication: ANAEMIA PROPHYLAXIS
     Route: 048
  10. BENET [Concomitant]
     Indication: OSTEOPOROSIS
     Route: 048

REACTIONS (2)
  - ORGANISING PNEUMONIA [None]
  - PNEUMONIA [None]
